FAERS Safety Report 13541543 (Version 4)
Quarter: 2017Q2

REPORT INFORMATION
  Report Type: Spontaneous
  Country: US (occurrence: US)
  Receive Date: 20170512
  Receipt Date: 20170606
  Transmission Date: 20170830
  Serious: Yes (Other)
  Sender: FDA-Public Use
  Company Number: US-AMGEN-USASP2017070373

PATIENT
  Age: 67 Year
  Sex: Female

DRUGS (9)
  1. PROCRIT [Suspect]
     Active Substance: ERYTHROPOIETIN
     Dosage: 40,000-60,000 UNITS, QWK
     Route: 058
     Dates: start: 201610
  2. HYDRALAZINE [Concomitant]
     Active Substance: HYDRALAZINE HYDROCHLORIDE
     Indication: HYPERTENSION
     Dosage: 50 MG, UNK
  3. NORVASC [Concomitant]
     Active Substance: AMLODIPINE BESYLATE
     Indication: HYPERTENSION
     Dosage: UNK
  4. PROCRIT [Suspect]
     Active Substance: ERYTHROPOIETIN
     Dosage: 60,000 UNITS, UNK
     Route: 058
     Dates: start: 201510
  5. PROCRIT [Suspect]
     Active Substance: ERYTHROPOIETIN
     Dosage: 60,000 UNITS, UNK
     Route: 058
     Dates: start: 201508
  6. PROCRIT [Suspect]
     Active Substance: ERYTHROPOIETIN
     Dosage: 40,000 UNITS, QWK
     Route: 058
     Dates: start: 201511
  7. IMDUR [Concomitant]
     Active Substance: ISOSORBIDE MONONITRATE
     Indication: HYPERTENSION
     Dosage: 30 MG, UNK
  8. PROCRIT [Suspect]
     Active Substance: ERYTHROPOIETIN
     Indication: NEPHROGENIC ANAEMIA
     Dosage: 40,000 UNITS, UNK
     Route: 058
     Dates: start: 201505
  9. LASIX [Concomitant]
     Active Substance: FUROSEMIDE
     Indication: HYPERTENSION
     Dosage: UNK

REACTIONS (3)
  - Drug ineffective [Not Recovered/Not Resolved]
  - Blood product transfusion dependent [Not Recovered/Not Resolved]
  - Aplasia pure red cell [Not Recovered/Not Resolved]

NARRATIVE: CASE EVENT DATE: 201702
